FAERS Safety Report 4681161-6 (Version None)
Quarter: 2005Q2

REPORT INFORMATION
  Report Type: 
  Country: None (occurrence: None)
  Receive Date: 20050602
  Receipt Date: 20050602
  Transmission Date: 20051028
  Serious: Yes (Other)
  Sender: FDA-Public Use
  Company Number: None

PATIENT
  Age: 55 Year
  Sex: Female
  Weight: 59.8748 kg

DRUGS (4)
  1. LEVAQUIN [Suspect]
     Indication: UPPER RESPIRATORY TRACT INFECTION
     Dosage: 1 TABLET    DAILY    ORAL
     Route: 048
     Dates: start: 20050428, end: 20050428
  2. ALBUTEROL [Concomitant]
  3. ESCLIM [Concomitant]
  4. PREMARIN [Concomitant]

REACTIONS (12)
  - ASTHENIA [None]
  - CHILLS [None]
  - DISORIENTATION [None]
  - FATIGUE [None]
  - HEADACHE [None]
  - HYPOAESTHESIA [None]
  - HYPOGLYCAEMIA [None]
  - NAUSEA [None]
  - PAIN [None]
  - PALPITATIONS [None]
  - THIRST [None]
  - VISUAL ACUITY REDUCED [None]
